FAERS Safety Report 19909405 (Version 1)
Quarter: 2021Q4

REPORT INFORMATION
  Report Type: Spontaneous
  Country: US (occurrence: US)
  Receive Date: 20211001
  Receipt Date: 20211001
  Transmission Date: 20220303
  Serious: No
  Sender: FDA-Public Use
  Company Number: US-AMARIN PHARMA, INC.-2021AMR000293

PATIENT
  Age: 64 Year
  Sex: Female
  Weight: 58.11 kg

DRUGS (3)
  1. VASCEPA [Suspect]
     Active Substance: ICOSAPENT ETHYL
     Indication: Blood triglycerides increased
     Route: 048
     Dates: end: 202103
  2. ALLOPURINOL [Concomitant]
     Active Substance: ALLOPURINOL
     Indication: Product used for unknown indication
  3. OLMESARTAN [Concomitant]
     Active Substance: OLMESARTAN
     Indication: Product used for unknown indication

REACTIONS (7)
  - Tremor [Unknown]
  - Blood pressure increased [Unknown]
  - Depressed mood [Unknown]
  - Palpitations [Unknown]
  - Ventricular extrasystoles [Unknown]
  - Supraventricular extrasystoles [Unknown]
  - Gout [Recovered/Resolved]
